FAERS Safety Report 20799245 (Version 1)
Quarter: 2022Q2

REPORT INFORMATION
  Report Type: Spontaneous
  Country: FR (occurrence: FR)
  Receive Date: 20220508
  Receipt Date: 20220508
  Transmission Date: 20220720
  Serious: Yes (Other)
  Sender: FDA-Public Use
  Company Number: None

PATIENT
  Age: 70 Year
  Sex: Female
  Weight: 50 kg

DRUGS (5)
  1. CAPECITABINE [Suspect]
     Active Substance: CAPECITABINE
     Indication: Breast cancer stage IV
     Dosage: 35000MG/M2, FREQUENCY TIME 3WEEKS
     Route: 048
     Dates: start: 202102
  2. LYRICA [Concomitant]
     Active Substance: PREGABALIN
     Indication: Cancer pain
     Dosage: THERAPY START DATE NASK, STRENGTH,UNIT DOSE: 25MG, FREQUENCY TIME 8HRS
     Route: 048
  3. LEVOTHYROXINE SODIUM [Concomitant]
     Active Substance: LEVOTHYROXINE SODIUM
     Indication: Post procedural hypothyroidism
     Dosage: 150MCG, THERAPY START DATE NASK, FREQUENCY TIME 1DAYS
     Route: 048
  4. MORPHINE SULFATE [Concomitant]
     Active Substance: MORPHINE SULFATE
     Indication: Cancer pain
     Route: 048
  5. AMITRIPTYLINE [Concomitant]
     Active Substance: AMITRIPTYLINE
     Indication: Cancer pain
     Route: 048

REACTIONS (1)
  - Aortic arteriosclerosis [Not Recovered/Not Resolved]

NARRATIVE: CASE EVENT DATE: 20220322
